FAERS Safety Report 10034100 (Version 1)
Quarter: 2014Q1

REPORT INFORMATION
  Report Type: Report from Study
  Country: US (occurrence: US)
  Receive Date: 20140325
  Receipt Date: 20140325
  Transmission Date: 20141002
  Serious: Yes (Hospitalization)
  Sender: FDA-Public Use
  Company Number: US-009507513-1403USA010175

PATIENT
  Age: 50 Year
  Sex: Female
  Weight: 101 kg

DRUGS (12)
  1. VORINOSTAT [Suspect]
     Indication: DIFFUSE LARGE B-CELL LYMPHOMA
     Dosage: 400 MG, QD (ON DAYS 1-5 OF 21 DAYS CYCLE (MAX. 8 CYCLES))
     Route: 048
     Dates: start: 20140114, end: 20140118
  2. VORINOSTAT [Suspect]
     Dosage: 400 MG, QD (ON DAYS 1-5 OF 21 DAYS CYCLE (MAX. 8 CYCLES))
     Route: 048
     Dates: start: 20130822, end: 20130826
  3. RITUXIMAB [Suspect]
     Indication: DIFFUSE LARGE B-CELL LYMPHOMA
     Dosage: 375 MG/M2, (ON DAY 3 OF 21 DAYS CYCLE (MAX. 8 CYCLES))
     Route: 042
     Dates: start: 20140116, end: 20140116
  4. RITUXIMAB [Suspect]
     Dosage: 375 MG/M2, (ON DAY 3 OF 21 DAYS CYCLE (MAX. 8 CYCLES))
     Route: 042
     Dates: start: 20130824, end: 20130824
  5. CYCLOPHOSPHAMIDE [Suspect]
     Indication: DIFFUSE LARGE B-CELL LYMPHOMA
     Dosage: 750 MG/M2, OVER 30-60 MINUTES (ON DAY 3 OF 21 DAYS CYCLE (MAX. 8 CYCLES))
     Route: 042
     Dates: start: 20140116, end: 20140116
  6. CYCLOPHOSPHAMIDE [Suspect]
     Dosage: 750 MG/M2, OVER 30-60 MINUTES (ON DAY 3 OF 21 DAYS CYCLE (MAX. 8 CYCLES))
     Route: 042
     Dates: start: 20130824, end: 20130824
  7. DOXORUBICIN [Suspect]
     Indication: DIFFUSE LARGE B-CELL LYMPHOMA
     Dosage: 50 MG/M2 (ON DAY 3 OF 21 DAYS CYCLE (MAX. 8 CYCLES))
     Route: 042
     Dates: start: 20140116, end: 20140116
  8. DOXORUBICIN [Suspect]
     Dosage: 50 MG/M2 (ON DAY 3 OF 21 DAYS CYCLE (MAX. 8 CYCLES))
     Route: 042
     Dates: start: 20130824, end: 20130824
  9. VINCRISTINE [Suspect]
     Indication: DIFFUSE LARGE B-CELL LYMPHOMA
     Dosage: 1.4 MG/M2 (ON DAY 3 OF 21 DAYS CYCLE (MAX. 8 CYCLES))
     Route: 042
     Dates: start: 20140116, end: 20140116
  10. VINCRISTINE [Suspect]
     Dosage: 1.4 MG/M2 (ON DAY 3 OF 21 DAYS CYCLE (MAX. 8 CYCLES))
     Route: 042
     Dates: start: 20130824, end: 20130824
  11. PREDNISONE [Suspect]
     Indication: DIFFUSE LARGE B-CELL LYMPHOMA
     Dosage: 100 MG, QD (ON DAYS 3-7 OF 21 DAYS CYCLE (MAX. 8 CYCLES))
     Route: 048
     Dates: start: 20140116, end: 20140120
  12. PREDNISONE [Suspect]
     Dosage: 100 MG, QD (ON DAYS 3-7 OF 21 DAYS CYCLE (MAX. 8 CYCLES))
     Route: 048
     Dates: start: 20130824, end: 20130828

REACTIONS (1)
  - Left ventricular dysfunction [Unknown]
